FAERS Safety Report 15790898 (Version 1)
Quarter: 2019Q1

REPORT INFORMATION
  Report Type: Spontaneous
  Country: US (occurrence: US)
  Receive Date: 20190104
  Receipt Date: 20190104
  Transmission Date: 20190417
  Serious: Yes (Hospitalization)
  Sender: FDA-Public Use
  Company Number: None

PATIENT
  Age: 53 Year
  Sex: Female
  Weight: 81 kg

DRUGS (9)
  1. LISINOPRIL. [Concomitant]
     Active Substance: LISINOPRIL
  2. MSIR [Concomitant]
     Active Substance: MORPHINE SULFATE
  3. MORPHINE ER -FORCED TO TAPER OFF [Suspect]
     Active Substance: MORPHINE SULFATE
     Indication: NERVE INJURY
     Dates: start: 20090701, end: 20161101
  4. MORPHINE ER -FORCED TO TAPER OFF [Suspect]
     Active Substance: MORPHINE SULFATE
     Indication: MUSCLE INJURY
     Dates: start: 20090701, end: 20161101
  5. HUMALOG [Concomitant]
     Active Substance: INSULIN LISPRO
  6. MORPHINE ER -FORCED TO TAPER OFF [Suspect]
     Active Substance: MORPHINE SULFATE
     Indication: PAIN
     Dates: start: 20090701, end: 20161101
  7. MEDTRONIC INSULIN PUMP [Concomitant]
  8. METOPROLOL. [Concomitant]
     Active Substance: METOPROLOL
  9. SIMVASTATIN. [Concomitant]
     Active Substance: SIMVASTATIN

REACTIONS (7)
  - Diarrhoea [None]
  - Gastrointestinal disorder [None]
  - Loss of personal independence in daily activities [None]
  - Wheelchair user [None]
  - Hyperhidrosis [None]
  - Shock haemorrhagic [None]
  - Respiratory arrest [None]

NARRATIVE: CASE EVENT DATE: 20180110
